FAERS Safety Report 25977322 (Version 1)
Quarter: 2025Q4

REPORT INFORMATION
  Report Type: Report from Study
  Country: US (occurrence: US)
  Receive Date: 20251030
  Receipt Date: 20251030
  Transmission Date: 20260118
  Serious: Yes (Other)
  Sender: ALEXION PHARMACEUTICALS
  Company Number: US-AstraZeneca-CH-00978347A

PATIENT
  Sex: Female

DRUGS (4)
  1. OLAPARIB [Suspect]
     Active Substance: OLAPARIB
     Indication: Ovarian cancer
  2. OXYCODONE [Concomitant]
     Active Substance: OXYCODONE
     Route: 065
  3. TIZANIDINE [Concomitant]
     Active Substance: TIZANIDINE
     Route: 065
  4. TORADOL [Concomitant]
     Active Substance: KETOROLAC TROMETHAMINE
     Route: 065

REACTIONS (4)
  - Back pain [Unknown]
  - Crying [Unknown]
  - Arthralgia [Unknown]
  - Compression fracture [Unknown]
